FAERS Safety Report 4915105-6 (Version None)
Quarter: 2006Q1

REPORT INFORMATION
  Report Type: 
  Country: None (occurrence: None)
  Receive Date: 20060215
  Receipt Date: 20060215
  Transmission Date: 20060701
  Serious: Yes (Life-Threatening, Hospitalization, Disabling, Other)
  Sender: FDA-Public Use
  Company Number: None

PATIENT
  Age: 55 Year
  Sex: Male
  Weight: 62 kg

DRUGS (2)
  1. LISINOPRIL [Suspect]
     Indication: HYPERTENSION
     Dosage: QD PO
     Route: 048
     Dates: start: 20051223, end: 20051223
  2. ACTOS [Concomitant]

REACTIONS (3)
  - ANGIONEUROTIC OEDEMA [None]
  - ASPIRATION [None]
  - LUNG INFECTION [None]
